FAERS Safety Report 22389674 (Version 1)
Quarter: 2023Q2

REPORT INFORMATION
  Report Type: Spontaneous
  Country: DE (occurrence: DE)
  Receive Date: 20230531
  Receipt Date: 20230531
  Transmission Date: 20230722
  Serious: Yes (Other)
  Sender: FDA-Public Use
  Company Number: DE-SAMSUNG BIOEPIS-SB-2023-14337

PATIENT
  Sex: Female

DRUGS (1)
  1. ETANERCEPT [Suspect]
     Active Substance: ETANERCEPT
     Indication: Rheumatoid arthritis
     Dosage: UNKNOWN, TAKES IT SINCE 3 MONTHS
     Route: 065

REACTIONS (5)
  - Angina pectoris [Unknown]
  - Chills [Unknown]
  - Pigmentation disorder [Unknown]
  - Dyspnoea [Unknown]
  - Palpitations [Unknown]
